FAERS Safety Report 4978102-0 (Version None)
Quarter: 2006Q2

REPORT INFORMATION
  Report Type: 
  Country: None (occurrence: None)
  Receive Date: 20060420
  Receipt Date: 20060410
  Transmission Date: 20061013
  Serious: Yes (Hospitalization)
  Sender: FDA-Public Use
  Company Number: 2006AC00717

PATIENT
  Age: 971 Month
  Sex: Male

DRUGS (4)
  1. CRESTOR [Suspect]
     Indication: HYPERCHOLESTEROLAEMIA
     Route: 048
     Dates: start: 20060301, end: 20060301
  2. ACETYLSALICYLZUUR [Concomitant]
     Dates: start: 20010501
  3. TILDIEM [Concomitant]
  4. COZAAR [Concomitant]
     Dates: start: 20050201

REACTIONS (1)
  - TRANSIENT ISCHAEMIC ATTACK [None]
